FAERS Safety Report 5938783-1 (Version None)
Quarter: 2008Q4

REPORT INFORMATION
  Report Type: 
  Country: None (occurrence: None)
  Receive Date: 20081103
  Receipt Date: 20081023
  Transmission Date: 20090506
  Serious: Yes (Hospitalization)
  Sender: FDA-Public Use
  Company Number: US-BAYER-200827989GPV

PATIENT
  Age: 44 Year
  Sex: Female
  Weight: 45 kg

DRUGS (17)
  1. CAMPATH [Suspect]
     Indication: CHRONIC LYMPHOCYTIC LEUKAEMIA
     Route: 042
     Dates: start: 20080507, end: 20080507
  2. CAMPATH [Suspect]
     Route: 042
     Dates: start: 20080508, end: 20080508
  3. CAMPATH [Suspect]
     Route: 042
     Dates: start: 20080509, end: 20080509
  4. CAMPATH [Suspect]
     Route: 042
     Dates: start: 20080512, end: 20080514
  5. CAMPATH [Suspect]
     Route: 042
     Dates: start: 20080619, end: 20080621
  6. CAMPATH [Suspect]
     Route: 042
     Dates: start: 20080716, end: 20080718
  7. CAMPATH [Suspect]
     Route: 042
     Dates: start: 20080818, end: 20080820
  8. CAMPATH [Suspect]
     Route: 042
     Dates: start: 20080918, end: 20080920
  9. FLUDARA [Suspect]
     Indication: CHRONIC LYMPHOCYTIC LEUKAEMIA
     Route: 042
     Dates: start: 20080918, end: 20080920
  10. FLUDARA [Suspect]
     Route: 042
     Dates: start: 20080818, end: 20080820
  11. FLUDARA [Suspect]
     Route: 042
     Dates: start: 20080716, end: 20080718
  12. FLUDARA [Suspect]
     Route: 042
     Dates: start: 20080619, end: 20080621
  13. FLUDARA [Suspect]
     Route: 042
     Dates: start: 20080512, end: 20080514
  14. ACYCLOVIR [Concomitant]
     Dates: start: 20080507
  15. CO-TRIMAZOLE [Concomitant]
     Dates: start: 20080507
  16. RANFERON [Concomitant]
     Dates: start: 20080508
  17. ETAMSILATE [Concomitant]
     Dates: start: 20080902, end: 20080930

REACTIONS (2)
  - LEUKOPENIA [None]
  - PANCREATITIS ACUTE [None]
